FAERS Safety Report 26028402 (Version 1)
Quarter: 2025Q4

REPORT INFORMATION
  Report Type: Report from Study
  Country: EU (occurrence: EU)
  Receive Date: 20251111
  Receipt Date: 20251111
  Transmission Date: 20260119
  Serious: Yes (Hospitalization)
  Sender: ROCHE
  Company Number: EU-ROCHE-10000431470

PATIENT
  Sex: Male

DRUGS (2)
  1. OCREVUS [Suspect]
     Active Substance: OCRELIZUMAB
     Indication: Product used for unknown indication
     Dosage: RECEIVED INFUSION ON 28-MAY-2025 (PRIOR TO TCP)
     Route: 042
     Dates: start: 20251103
  2. OCREVUS [Suspect]
     Active Substance: OCRELIZUMAB
     Dosage: PRIOR TO TCP)
     Route: 042
     Dates: start: 20250528

REACTIONS (1)
  - Thyroid disorder [Recovering/Resolving]
